FAERS Safety Report 19286910 (Version 1)
Quarter: 2021Q2

REPORT INFORMATION
  Report Type: Report from Study
  Country: US (occurrence: US)
  Receive Date: 20210522
  Receipt Date: 20210522
  Transmission Date: 20210717
  Serious: Yes (Other)
  Sender: FDA-Public Use
  Company Number: US-AUROBINDO-AUR-APL-2019-081077

PATIENT
  Age: 51 Year
  Sex: Male

DRUGS (6)
  1. OXYCODONE;PARACETAMOL [Concomitant]
     Active Substance: ACETAMINOPHEN\OXYCODONE HYDROCHLORIDE
     Indication: PRODUCT USED FOR UNKNOWN INDICATION
     Dosage: 5/325 MG
     Route: 065
  2. DULOXETINE. [Suspect]
     Active Substance: DULOXETINE
     Indication: NEURALGIA
     Dosage: 30 MILLIGRAM
     Route: 065
  3. BORTEZOMIB. [Concomitant]
     Active Substance: BORTEZOMIB
     Indication: PRODUCT USED FOR UNKNOWN INDICATION
     Dosage: UNK
     Route: 065
  4. GABAPENTIN. [Suspect]
     Active Substance: GABAPENTIN
     Indication: NEURALGIA
     Dosage: UNK
     Route: 065
  5. NORTRIPTYLINE [Suspect]
     Active Substance: NORTRIPTYLINE
     Indication: NEURALGIA
     Dosage: 50 MILLIGRAM, ONCE A DAY
     Route: 065
  6. TRAMADOL. [Concomitant]
     Active Substance: TRAMADOL
     Indication: PRODUCT USED FOR UNKNOWN INDICATION
     Dosage: 50 MILLIGRAM, FOUR TIMES/DAY PRN
     Route: 065

REACTIONS (10)
  - Dizziness [Unknown]
  - Nausea [Unknown]
  - Agitation [Unknown]
  - Orthostatic intolerance [Unknown]
  - Hyperhidrosis [Unknown]
  - Off label use [Unknown]
  - Dyspnoea [Unknown]
  - Restlessness [Unknown]
  - Confusional state [Unknown]
  - Tremor [Unknown]
